FAERS Safety Report 8902373 (Version 1)
Quarter: 2012Q4

REPORT INFORMATION
  Report Type: 
  Country: US (occurrence: US)
  Receive Date: 20121112
  Receipt Date: 20121112
  Transmission Date: 20130627
  Serious: Yes (Other)
  Sender: FDA-Public Use
  Company Number: US-BAYER-2012-117989

PATIENT
  Age: 60 Year
  Sex: Male
  Weight: 86.17 kg

DRUGS (3)
  1. ALKA SELTZER [Suspect]
     Indication: RESPIRATORY TRACT CONGESTION
     Dosage: 2 DF, ONCE
     Route: 048
     Dates: start: 20121106, end: 20121106
  2. LEVOTHYROXINE [Concomitant]
  3. AZITHROMYCIN [Concomitant]

REACTIONS (2)
  - Blood pressure increased [Not Recovered/Not Resolved]
  - Expired drug administered [None]
